FAERS Safety Report 26076383 (Version 1)
Quarter: 2025Q4

REPORT INFORMATION
  Report Type: Spontaneous
  Country: US (occurrence: US)
  Receive Date: 20251121
  Receipt Date: 20251121
  Transmission Date: 20260117
  Serious: No
  Sender: ROCHE
  Company Number: US-ROCHE-10000432163

PATIENT
  Age: 59 Year
  Sex: Female

DRUGS (13)
  1. RITUXAN [Suspect]
     Active Substance: RITUXIMAB
     Indication: Product used for unknown indication
     Route: 065
  2. OCREVUS [Suspect]
     Active Substance: OCRELIZUMAB
     Indication: Product used for unknown indication
     Route: 065
  3. VUMERITY [Suspect]
     Active Substance: DIROXIMEL FUMARATE
     Indication: Multiple sclerosis
     Route: 048
  4. ESCITALOPRAM OXALATE|CVS B COMPLEX PLU [Concomitant]
  5. OXYBUTYNIN CHLORIDE ER|FISH OIL [Concomitant]
  6. DONEPEZIL HYDROCHLORIDE [Concomitant]
     Active Substance: DONEPEZIL HYDROCHLORIDE
  7. GABAPENTIN [Concomitant]
     Active Substance: GABAPENTIN
  8. LUMIGAN [Concomitant]
     Active Substance: BIMATOPROST
  9. FEXOFENADINE HYDROCHLORIDE [Concomitant]
     Active Substance: FEXOFENADINE HYDROCHLORIDE
  10. MAGNESIUM [Concomitant]
     Active Substance: MAGNESIUM
  11. FOLIC ACID [Concomitant]
     Active Substance: FOLIC ACID
  12. BIOTIN [Concomitant]
     Active Substance: BIOTIN
  13. D-3-5 [Concomitant]

REACTIONS (2)
  - Flushing [Unknown]
  - Drug hypersensitivity [Unknown]
